FAERS Safety Report 19059841 (Version 1)
Quarter: 2021Q1

REPORT INFORMATION
  Report Type: Spontaneous
  Country: US (occurrence: US)
  Receive Date: 20210326
  Receipt Date: 20210326
  Transmission Date: 20210420
  Serious: No
  Sender: FDA-Public Use
  Company Number: US-EPICPHARMA-US-2021EPCSPO00291

PATIENT
  Age: 60 Year
  Sex: Female

DRUGS (2)
  1. URSODIOL. [Suspect]
     Active Substance: URSODIOL
     Indication: PRODUCT USED FOR UNKNOWN INDICATION
     Route: 065
  2. OCALIVA [Concomitant]
     Active Substance: OBETICHOLIC ACID
     Indication: PRIMARY BILIARY CHOLANGITIS
     Route: 048
     Dates: start: 20200321

REACTIONS (2)
  - Loss of personal independence in daily activities [Unknown]
  - Unevaluable event [Unknown]
